FAERS Safety Report 8732502 (Version 2)
Quarter: 2012Q4

REPORT INFORMATION
  Report Type: 
  Country: US (occurrence: US)
  Receive Date: 20120820
  Receipt Date: 20120906
  Transmission Date: 20130627
  Serious: Yes (Hospitalization)
  Sender: FDA-Public Use
  Company Number: US-GILEAD-2012-0059820

PATIENT
  Sex: Female

DRUGS (1)
  1. LETAIRIS [Suspect]
     Indication: PRODUCT USED FOR UNKNOWN INDICATION
     Dosage: 5 mg, UNK
     Route: 048
     Dates: start: 20120802

REACTIONS (16)
  - Heart rate decreased [Unknown]
  - Heart rate irregular [Unknown]
  - Bradycardia [Unknown]
  - Bronchitis [Unknown]
  - Angina pectoris [Unknown]
  - Diarrhoea [Unknown]
  - Body temperature increased [Unknown]
  - Blood creatinine increased [Unknown]
  - Decreased appetite [Unknown]
  - Chest pain [Unknown]
  - Dizziness [Unknown]
  - Vomiting [Unknown]
  - Dizziness [Unknown]
  - Fluid overload [Unknown]
  - Fatigue [Unknown]
  - Nausea [Unknown]
